FAERS Safety Report 8189365 (Version 2)
Quarter: 2013Q2

REPORT INFORMATION
  Report Type: Report from Study
  Country: US (occurrence: US)
  Receive Date: 20111019
  Receipt Date: 20130517
  Transmission Date: 20140414
  Serious: Yes (Other)
  Sender: FDA-Public Use
  Company Number: PHEH2011US06157

PATIENT
  Age: 44 Year
  Sex: Female

DRUGS (15)
  1. GILENYA [Suspect]
     Indication: MULTIPLE SCLEROSIS
     Dosage: 0.5 MG, QD
     Route: 048
     Dates: start: 20110822, end: 20111005
  2. LASIX [Concomitant]
     Dosage: 40 MG, QD
  3. NEURONTIN [Concomitant]
     Dosage: 300 MG, TID
     Route: 048
  4. PAXIL [Concomitant]
     Dosage: 40 MG, QD
  5. REMERON [Concomitant]
     Dosage: 30 MG, QD
  6. VICODIN [Concomitant]
  7. XANAX [Concomitant]
     Dosage: 0.25 MG, BID
  8. ZANAFLEX [Concomitant]
     Dosage: 4 MG, QD
  9. DULOXETINE [Concomitant]
     Dosage: 60 MG, QD
     Route: 048
  10. BACLOFEN [Concomitant]
     Dosage: 20 MG, BID
     Route: 048
  11. TOPAMAX [Concomitant]
     Dosage: 50 MG, BID
  12. TIZANIDINE [Concomitant]
     Dosage: 6 MG, BID
     Route: 048
  13. ALPRAZOLAM [Concomitant]
     Indication: SLEEP DISORDER
     Dosage: 0.25 MG, QD
     Route: 048
  14. CALCIUM + VITAMIN D [Concomitant]
     Dosage: 500 MG, QD
     Route: 048
  15. HYDROCODONE/ACETAMINOPHEN [Concomitant]
     Dosage: 1 DF, Q4H
     Route: 048

REACTIONS (10)
  - Progressive multiple sclerosis [Not Recovered/Not Resolved]
  - Gait disturbance [Not Recovered/Not Resolved]
  - Hemiparesis [Not Recovered/Not Resolved]
  - Central nervous system lesion [Recovered/Resolved]
  - Muscular weakness [Unknown]
  - Micturition urgency [Not Recovered/Not Resolved]
  - Concomitant disease aggravated [Not Recovered/Not Resolved]
  - Depression [Not Recovered/Not Resolved]
  - Migraine [Not Recovered/Not Resolved]
  - Crying [Unknown]
